FAERS Safety Report 6807434-6 (Version None)
Quarter: 2010Q2

REPORT INFORMATION
  Report Type: 
  Country: None (occurrence: None)
  Receive Date: 20100629
  Receipt Date: 20081101
  Transmission Date: 20101027
  Serious: No
  Sender: FDA-Public Use
  Company Number: US-PFIZER INC-2008081642

PATIENT
  Age: 52 Year
  Sex: Male

DRUGS (4)
  1. TIKOSYN [Suspect]
     Indication: CARDIAC DISORDER
     Dates: start: 20080701
  2. WARFARIN SODIUM [Concomitant]
  3. CARDIZEM [Concomitant]
  4. ACETYLSALICYLIC ACID [Concomitant]

REACTIONS (1)
  - GINGIVAL HYPERPLASIA [None]
